FAERS Safety Report 5062829-9 (Version None)
Quarter: 2006Q3

REPORT INFORMATION
  Report Type: 
  Country: None (occurrence: None)
  Receive Date: 20060726
  Receipt Date: 20060713
  Transmission Date: 20061208
  Serious: Yes (Hospitalization, Disabling, Other)
  Sender: FDA-Public Use
  Company Number: US-MERCK-0607USA02551

PATIENT
  Sex: Male

DRUGS (2)
  1. PRIMAXIN [Suspect]
     Indication: KLEBSIELLA BACTERAEMIA
     Route: 041
     Dates: start: 20060705, end: 20060711
  2. PRIMAXIN [Suspect]
     Indication: ENTEROCOCCAL BACTERAEMIA
     Route: 041
     Dates: start: 20060705, end: 20060711

REACTIONS (3)
  - COMA [None]
  - CONFUSIONAL STATE [None]
  - MENTAL STATUS CHANGES [None]
